FAERS Safety Report 17718247 (Version 1)
Quarter: 2020Q2

REPORT INFORMATION
  Report Type: Report from Study
  Country: ES (occurrence: ES)
  Receive Date: 20200428
  Receipt Date: 20200428
  Transmission Date: 20200714
  Serious: Yes (Life-Threatening)
  Sender: FDA-Public Use
  Company Number: ES-MYLANLABS-2020M1041510

PATIENT
  Age: 55 Year
  Sex: Male

DRUGS (6)
  1. RITUXIMAB. [Interacting]
     Active Substance: RITUXIMAB
     Indication: DIFFUSE LARGE B-CELL LYMPHOMA STAGE IV
     Dosage: 1.6 GRAM, TOTAL
     Route: 042
     Dates: start: 20190909, end: 20191007
  2. CISPLATINO [Interacting]
     Active Substance: CISPLATIN
     Indication: DIFFUSE LARGE B-CELL LYMPHOMA STAGE IV
     Dosage: 426.4 MILLIGRAM, TOTAL
     Route: 042
     Dates: start: 20190909, end: 20191007
  3. ETOPOSIDE. [Suspect]
     Active Substance: ETOPOSIDE
     Indication: DIFFUSE LARGE B-CELL LYMPHOMA STAGE IV
     Dosage: 681.6 MILLIGRAM, TOTAL
     Route: 042
     Dates: start: 20190909, end: 20191007
  4. CITARABINA [Interacting]
     Active Substance: CYTARABINE
     Indication: DIFFUSE LARGE B-CELL LYMPHOMA STAGE IV
     Dosage: 8.52 MILLIGRAM, TOTAL
     Route: 042
     Dates: start: 20190913, end: 20191011
  5. METILPREDNISOLONA                  /00049601/ [Interacting]
     Active Substance: METHYLPREDNISOLONE
     Indication: DIFFUSE LARGE B-CELL LYMPHOMA STAGE IV
     Dosage: 2 GRAM, TOTAL
     Route: 042
     Dates: start: 20190909, end: 20191007
  6. ONDANSETRON [Concomitant]
     Active Substance: ONDANSETRON
     Indication: NAUSEA
     Dosage: 272 MILLIGRAM, TOTAL
     Route: 042
     Dates: start: 20190909, end: 20191013

REACTIONS (3)
  - Proctitis [Recovered/Resolved]
  - Septic shock [Recovered/Resolved]
  - Drug interaction [Unknown]

NARRATIVE: CASE EVENT DATE: 20191011
